FAERS Safety Report 19282074 (Version 1)
Quarter: 2021Q2

REPORT INFORMATION
  Report Type: Spontaneous
  Country: US (occurrence: US)
  Receive Date: 20210521
  Receipt Date: 20210521
  Transmission Date: 20210717
  Serious: Yes (Other)
  Sender: FDA-Public Use
  Company Number: US-CURIUM-2021000364

PATIENT
  Age: 11 Year
  Sex: Female

DRUGS (1)
  1. SODIUM IODIDE I 131 [Suspect]
     Active Substance: SODIUM IODIDE I-131
     Dosage: 7 DOSES
     Route: 065

REACTIONS (3)
  - Treatment failure [Unknown]
  - Radiation pneumonitis [Unknown]
  - Refractory cancer [Unknown]
